FAERS Safety Report 23204717 (Version 3)
Quarter: 2023Q4

REPORT INFORMATION
  Report Type: Report from Study
  Country: HK (occurrence: None)
  Receive Date: 20231120
  Receipt Date: 20231124
  Transmission Date: 20240109
  Serious: Yes (Death)
  Sender: FDA-Public Use
  Company Number: 2023A259209

PATIENT
  Age: 72 Year
  Sex: Male
  Weight: 65.5 kg

DRUGS (17)
  1. CILGAVIMAB\TIXAGEVIMAB [Suspect]
     Active Substance: CILGAVIMAB\TIXAGEVIMAB
     Indication: COVID-19
     Dosage: 600.0MG ONCE/SINGLE ADMINISTRATION
     Route: 030
     Dates: start: 20221109, end: 20221109
  2. SENNA TABLET [Concomitant]
     Route: 048
     Dates: start: 20211005, end: 20231017
  3. ACETYLCYSTEINE SUGAR FREE GRANULES [Concomitant]
     Indication: Cough
     Route: 048
     Dates: start: 20230414, end: 20231018
  4. POTASSIUM CHLORIDE SUSTAINED RELEASE TABLET [Concomitant]
     Dosage: AS NEEDED
     Route: 048
     Dates: start: 20211102, end: 20231023
  5. PANTOPRAZOLE SODIUM [Concomitant]
     Active Substance: PANTOPRAZOLE SODIUM
     Route: 048
     Dates: start: 20211005
  6. ACYCLOVIR [Concomitant]
     Active Substance: ACYCLOVIR
     Indication: Prophylaxis
     Route: 048
     Dates: start: 20211203, end: 20231026
  7. HYDROCORTISONE [Concomitant]
     Active Substance: HYDROCORTISONE
     Indication: Symptomatic treatment
     Route: 048
     Dates: start: 20230830
  8. ACETAMINOPHEN [Concomitant]
     Active Substance: ACETAMINOPHEN
     Indication: Prophylaxis
     Dosage: AS NEEDED
     Route: 048
     Dates: start: 20220815, end: 20231017
  9. CEFTRIAXONE [Concomitant]
     Active Substance: CEFTRIAXONE\CEFTRIAXONE SODIUM
     Indication: Treatment boosted antibody positive
     Dosage: 2G
     Route: 051
     Dates: start: 20230901, end: 20230929
  10. IPRATROPIUM BROMIDE [Concomitant]
     Active Substance: IPRATROPIUM BROMIDE\IPRATROPIUM BROMIDE ANHYDROUS
     Indication: Symptomatic treatment
     Dosage: 80 MCG
     Route: 045
     Dates: start: 20230901
  11. ALBUTEROL SULFATE [Concomitant]
     Active Substance: ALBUTEROL SULFATE
     Indication: Symptomatic treatment
     Dosage: 400 MCG
     Route: 045
     Dates: start: 20230825
  12. BROMHEXINE HCL TABLET [Concomitant]
     Indication: Symptomatic treatment
     Dosage: 24 MG
     Route: 048
     Dates: start: 20230929
  13. CHLORPHENIRAMINE MALEATE TABLET [Concomitant]
     Indication: Symptomatic treatment
     Dosage: 4 MG
     Route: 048
     Dates: start: 20230926, end: 20231017
  14. LACTULOSE [Concomitant]
     Active Substance: LACTULOSE
     Indication: Symptomatic treatment
     Dosage: AS NEEDED
     Route: 048
     Dates: start: 20230201, end: 20231017
  15. LOPERAMIDE HCL CAPSULE [Concomitant]
     Indication: Symptomatic treatment
     Dosage: 6 MG
     Route: 048
     Dates: start: 20230301, end: 20230501
  16. BISOPROLOL FUMARATE TABLET [Concomitant]
     Indication: Hypertension
     Dosage: 1.25 MG
     Route: 048
     Dates: start: 20231026
  17. FRUSEMIDE TABLET [Concomitant]
     Indication: Hypertension
     Dosage: AS NEEDED
     Route: 048
     Dates: start: 20211005, end: 20230920

REACTIONS (1)
  - Pneumonia [Fatal]

NARRATIVE: CASE EVENT DATE: 20231014
